FAERS Safety Report 16395323 (Version 1)
Quarter: 2019Q2

REPORT INFORMATION
  Report Type: Spontaneous
  Country: US (occurrence: US)
  Receive Date: 20190605
  Receipt Date: 20190605
  Transmission Date: 20190711
  Serious: No
  Sender: FDA-Public Use
  Company Number: US-JNJFOC-20190527302

PATIENT
  Age: 1 Year
  Sex: Male
  Weight: 14.52 kg

DRUGS (3)
  1. DIMETAPP (PPA) [Concomitant]
     Indication: COUGH
     Route: 065
  2. MOTRIN INFANTS [Suspect]
     Active Substance: IBUPROFEN
     Indication: PYREXIA
     Dosage: EVERY 5-6 HOURS
     Route: 048
     Dates: start: 20190512
  3. MOTRIN INFANTS [Suspect]
     Active Substance: IBUPROFEN
     Indication: NASOPHARYNGITIS
     Dosage: EVERY 5-6 HOURS
     Route: 048
     Dates: start: 20190512

REACTIONS (2)
  - Incorrect dose administered [Unknown]
  - Inappropriate schedule of product administration [Unknown]

NARRATIVE: CASE EVENT DATE: 20190512
